FAERS Safety Report 5790834-3 (Version None)
Quarter: 2008Q2

REPORT INFORMATION
  Report Type: 
  Country: None (occurrence: None)
  Receive Date: 20080626
  Receipt Date: 20080617
  Transmission Date: 20081010
  Serious: Yes (Other)
  Sender: FDA-Public Use
  Company Number: IT-BRISTOL-MYERS SQUIBB COMPANY-14216212

PATIENT
  Age: 30 Year
  Sex: Female

DRUGS (7)
  1. IFOSFAMIDE [Suspect]
     Indication: HODGKIN'S DISEASE
     Dosage: RECEIVED SECOND CYCLE ON 17JUN2008.
     Dates: start: 20080521, end: 20080524
  2. VINORELBINE [Suspect]
     Indication: HODGKIN'S DISEASE
     Dosage: RECEIVED SECOND CYCLE ON 17JUN2008.
     Dates: start: 20080521, end: 20080521
  3. GEMZAR [Suspect]
     Indication: HODGKIN'S DISEASE
     Dosage: 2 ADMIN,RECEIVED SECOND CYCLE ON 17JUN2008.
     Route: 042
     Dates: start: 20080521, end: 20080524
  4. UROMITEXAN [Concomitant]
     Dosage: 1 DOSAGE FORM = 400MG/4ML
     Route: 042
     Dates: start: 20080521, end: 20080524
  5. ZOFRAN [Concomitant]
     Dosage: 1 DOSAGE FORM  = 8MG/4ML
     Route: 042
     Dates: start: 20080521, end: 20080524
  6. SOLU-MEDROL [Concomitant]
     Dosage: 1 DOSAGE FORM = 125MG/2ML.
     Dates: start: 20080521, end: 20080524
  7. OMEPRAZOLE [Concomitant]
     Dates: start: 20080521, end: 20080524

REACTIONS (1)
  - PALMAR-PLANTAR ERYTHRODYSAESTHESIA SYNDROME [None]
